FAERS Safety Report 10974901 (Version 1)
Quarter: 2015Q2

REPORT INFORMATION
  Report Type: Spontaneous
  Country: US (occurrence: US)
  Receive Date: 20150401
  Receipt Date: 20150401
  Transmission Date: 20150821
  Serious: No
  Sender: FDA-Public Use
  Company Number: US-HORIZON-ACT-0029-2015

PATIENT
  Age: 61 Year
  Sex: Female

DRUGS (6)
  1. ACTIMMUNE [Suspect]
     Active Substance: INTERFERON GAMMA-1B
     Indication: FRIEDREICH^S ATAXIA
     Route: 058
     Dates: start: 20141219
  2. CELEBREX [Concomitant]
     Active Substance: CELECOXIB
  3. BACLOFEN. [Concomitant]
     Active Substance: BACLOFEN
  4. VITAMIN D [Concomitant]
     Active Substance: CHOLECALCIFEROL
  5. VITAMIN B [Concomitant]
     Active Substance: VITAMIN B
  6. ACTONEL [Concomitant]
     Active Substance: RISEDRONATE SODIUM

REACTIONS (3)
  - Cold sweat [Unknown]
  - Insomnia [Unknown]
  - Off label use [Unknown]

NARRATIVE: CASE EVENT DATE: 201502
